FAERS Safety Report 23357656 (Version 1)
Quarter: 2024Q1

REPORT INFORMATION
  Report Type: Spontaneous
  Country: IT (occurrence: IT)
  Receive Date: 20240102
  Receipt Date: 20240102
  Transmission Date: 20240410
  Serious: Yes (Other)
  Sender: FDA-Public Use
  Company Number: IT-ELI_LILLY_AND_COMPANY-IT202312005681

PATIENT
  Age: 53 Year
  Sex: Female

DRUGS (2)
  1. PEMETREXED [Suspect]
     Active Substance: PEMETREXED
     Indication: Product used for unknown indication
     Dosage: 500 MILLIGRAM, Q3W (500 MG, OTHER EVERY THREE WEEKS)
     Route: 065
     Dates: start: 202301
  2. CISPLATIN [Concomitant]
     Active Substance: CISPLATIN
     Indication: Product used for unknown indication
     Dosage: 75 MILLIGRAM (75 MG, OTHER DAY 1 )
     Route: 065
     Dates: start: 202301

REACTIONS (1)
  - Malignant neoplasm progression [Unknown]
